FAERS Safety Report 6737847-2 (Version None)
Quarter: 2010Q2

REPORT INFORMATION
  Report Type: 
  Country: None (occurrence: None)
  Receive Date: 20100524
  Receipt Date: 20100519
  Transmission Date: 20101027
  Serious: Yes (Hospitalization, Other)
  Sender: FDA-Public Use
  Company Number: JP-BRACCO-003522

PATIENT

DRUGS (1)
  1. IOPAMIDOL [Suspect]
     Indication: COMPUTERISED TOMOGRAM
     Route: 042
     Dates: start: 20100510, end: 20100510

REACTIONS (2)
  - DELIRIUM [None]
  - LOSS OF CONSCIOUSNESS [None]
